FAERS Safety Report 6389895-2 (Version None)
Quarter: 2009Q4

REPORT INFORMATION
  Report Type: 
  Country: None (occurrence: None)
  Receive Date: 20091006
  Receipt Date: 20090309
  Transmission Date: 20100525
  Serious: No
  Sender: FDA-Public Use
  Company Number: US-BRISTOL-MYERS SQUIBB COMPANY-14528426

PATIENT
  Age: 63 Year
  Sex: Female
  Weight: 77 kg

DRUGS (3)
  1. AVAPRO [Suspect]
     Indication: HYPERTENSION
     Route: 048
     Dates: start: 20080606
  2. NEXIUM [Suspect]
  3. HYDROCHLOROTHIAZIDE [Suspect]
     Dosage: 1 DF = 37.5MG/25MG

REACTIONS (1)
  - SKIN BURNING SENSATION [None]
